FAERS Safety Report 17904482 (Version 2)
Quarter: 2020Q3

REPORT INFORMATION
  Report Type: Report from Study
  Country: RU (occurrence: RU)
  Receive Date: 20200617
  Receipt Date: 20200713
  Transmission Date: 20201103
  Serious: Yes (Death, Other)
  Sender: FDA-Public Use
  Company Number: NVSC2020RU167604

PATIENT
  Age: 65 Year
  Sex: Male

DRUGS (1)
  1. ILARIS [Suspect]
     Active Substance: CANAKINUMAB
     Indication: COVID-19 PNEUMONIA
     Dosage: 150 MG
     Route: 065
     Dates: start: 20200508

REACTIONS (17)
  - Anaemia [Unknown]
  - Multiple organ dysfunction syndrome [Unknown]
  - Pulmonary embolism [Unknown]
  - COVID-19 [Fatal]
  - Angina pectoris [Unknown]
  - Brain oedema [Unknown]
  - Pancreatitis chronic [Unknown]
  - Disseminated intravascular coagulation [Unknown]
  - Embolic stroke [Unknown]
  - Pulmonary oedema [Unknown]
  - Respiratory failure [Unknown]
  - Sepsis [Unknown]
  - Cardiac failure chronic [Unknown]
  - Hyperparathyroidism secondary [Unknown]
  - Pneumonia [Unknown]
  - Antibiotic associated colitis [Unknown]
  - Hypertension [Unknown]

NARRATIVE: CASE EVENT DATE: 20200519
